FAERS Safety Report 7335696-8 (Version None)
Quarter: 2011Q1

REPORT INFORMATION
  Report Type: 
  Country: None (occurrence: None)
  Receive Date: 20110307
  Receipt Date: 20110225
  Transmission Date: 20110831
  Serious: Yes (Hospitalization)
  Sender: FDA-Public Use
  Company Number: A0916206A

PATIENT
  Age: 63 Year
  Sex: Female
  Weight: 112.5 kg

DRUGS (7)
  1. SYNTHROID [Concomitant]
     Dosage: 150MCG PER DAY
  2. DOXIL [Suspect]
     Indication: BREAST CANCER METASTATIC
     Dosage: 45MGM2 CYCLIC
     Route: 042
     Dates: start: 20100706
  3. LAPATINIB [Suspect]
     Indication: BREAST CANCER METASTATIC
     Dosage: 1500MG PER DAY
     Route: 048
     Dates: start: 20100628
  4. WARFARIN [Concomitant]
  5. ENTERIC ASPIRIN [Concomitant]
     Dosage: 81MG PER DAY
  6. LIPITOR [Concomitant]
     Dosage: 40MG PER DAY
  7. METOPROLOL [Concomitant]
     Dosage: 25MG PER DAY

REACTIONS (1)
  - LOCALISED INFECTION [None]
